FAERS Safety Report 10754308 (Version 1)
Quarter: 2015Q1

REPORT INFORMATION
  Report Type: Spontaneous
  Country: FR (occurrence: FR)
  Receive Date: 20150202
  Receipt Date: 20150202
  Transmission Date: 20150721
  Serious: Yes (Life-Threatening)
  Sender: FDA-Public Use
  Company Number: FR-JNJFOC-20150117375

PATIENT
  Age: 45 Year
  Sex: Male

DRUGS (8)
  1. BISOPROLOL [Concomitant]
     Active Substance: BISOPROLOL
     Route: 065
  2. BACLOFEN. [Concomitant]
     Active Substance: BACLOFEN
     Route: 065
  3. CORDARONE [Concomitant]
     Active Substance: AMIODARONE HYDROCHLORIDE
     Route: 065
  4. XARELTO [Suspect]
     Active Substance: RIVAROXABAN
     Indication: CEREBROVASCULAR ACCIDENT PROPHYLAXIS
     Route: 048
     Dates: start: 20141220, end: 20150104
  5. INEXIUM [Concomitant]
     Active Substance: ESOMEPRAZOLE
     Route: 065
  6. AERIUS [Concomitant]
     Active Substance: DESLORATADINE
     Route: 065
  7. XARELTO [Suspect]
     Active Substance: RIVAROXABAN
     Indication: ATRIAL FIBRILLATION
     Route: 048
     Dates: start: 20141220, end: 20150104
  8. COVERSYL [Concomitant]
     Active Substance: PERINDOPRIL
     Route: 065

REACTIONS (2)
  - Cardiac tamponade [Recovered/Resolved]
  - Pericardial haemorrhage [Recovered/Resolved]

NARRATIVE: CASE EVENT DATE: 20150104
